FAERS Safety Report 8062684 (Version 2)
Quarter: 2014Q2

REPORT INFORMATION
  Report Type: Spontaneous
  Country: US (occurrence: US)
  Receive Date: 20110801
  Receipt Date: 20140522
  Transmission Date: 20141212
  Serious: Yes (Other)
  Sender: FDA-Public Use
  Company Number: US-ROCHE-757223

PATIENT
  Age: 41 Year
  Sex: Male
  Weight: 86.2 kg

DRUGS (5)
  1. ACCUTANE [Suspect]
     Indication: ACNE
     Route: 065
     Dates: start: 198401, end: 199912
  2. ACCUTANE [Suspect]
     Route: 048
     Dates: start: 200803, end: 200804
  3. ACCUTANE [Suspect]
     Route: 048
     Dates: start: 20100720, end: 201009
  4. LIALDA [Concomitant]
  5. TRAMADOL [Concomitant]

REACTIONS (15)
  - Colitis ulcerative [Unknown]
  - Abdominal pain [Unknown]
  - Rectal haemorrhage [Unknown]
  - Inflammatory bowel disease [Unknown]
  - Depression [Unknown]
  - Anal fissure [Unknown]
  - Sinusitis [Unknown]
  - Bursitis [Unknown]
  - Carpal tunnel syndrome [Unknown]
  - Pharyngitis [Unknown]
  - Costochondritis [Unknown]
  - Periorbital oedema [Unknown]
  - Irritable bowel syndrome [Unknown]
  - Arthralgia [Unknown]
  - Dry skin [Unknown]
